FAERS Safety Report 21270866 (Version 4)
Quarter: 2022Q4

REPORT INFORMATION
  Report Type: Report from Study
  Country: US (occurrence: US)
  Receive Date: 20220830
  Receipt Date: 20221114
  Transmission Date: 20230113
  Serious: No
  Sender: FDA-Public Use
  Company Number: US-NOVARTISTESTPH-NVSC2022US195035

PATIENT
  Sex: Male

DRUGS (1)
  1. ENTRESTO [Suspect]
     Active Substance: SACUBITRIL\VALSARTAN
     Indication: Product used for unknown indication
     Dosage: 1 DOSAGE FORM, BID (24/26 MG) (24.3 MG SACUBITRIL AND 25.7 MG VALSARTAN)
     Route: 065

REACTIONS (6)
  - Throat clearing [Unknown]
  - Hypotension [Unknown]
  - Fatigue [Unknown]
  - Prescribed underdose [Unknown]
  - Product use issue [Unknown]
  - Wrong technique in product usage process [Unknown]
